FAERS Safety Report 11256398 (Version 2)
Quarter: 2015Q3

REPORT INFORMATION
  Report Type: Spontaneous
  Country: US (occurrence: US)
  Receive Date: 20150709
  Receipt Date: 20150722
  Transmission Date: 20151125
  Serious: No
  Sender: FDA-Public Use
  Company Number: US-JNJFOC-20150704989

PATIENT
  Sex: Male

DRUGS (18)
  1. PREDNISONE. [Concomitant]
     Active Substance: PREDNISONE
  2. ASPIRIN. [Concomitant]
     Active Substance: ASPIRIN
  3. FERROUS SULFATE [Concomitant]
     Active Substance: FERROUS SULFATE\FERROUS SULFATE, DRIED
  4. RANITIDINE [Concomitant]
     Active Substance: RANITIDINE\RANITIDINE HYDROCHLORIDE
  5. SINGULAIR [Concomitant]
     Active Substance: MONTELUKAST SODIUM
  6. GABAPENTIN. [Concomitant]
     Active Substance: GABAPENTIN
  7. IBUPROFEN. [Concomitant]
     Active Substance: IBUPROFEN
  8. CALCIUM [Concomitant]
     Active Substance: CALCIUM
  9. DILTIAZEM [Concomitant]
     Active Substance: DILTIAZEM
  10. BACTRIM [Concomitant]
     Active Substance: SULFAMETHOXAZOLE\TRIMETHOPRIM
  11. IMBRUVICA [Suspect]
     Active Substance: IBRUTINIB
     Indication: CHRONIC LYMPHOCYTIC LEUKAEMIA
     Route: 048
     Dates: start: 20140717
  12. FLUCONAZOLE. [Concomitant]
     Active Substance: FLUCONAZOLE
  13. XOPENEX [Concomitant]
     Active Substance: LEVALBUTEROL HYDROCHLORIDE
  14. PROTONIX [Concomitant]
     Active Substance: PANTOPRAZOLE SODIUM
  15. VITAMIN C [Concomitant]
     Active Substance: ASCORBIC ACID
  16. AZITHROMYCIN [Concomitant]
     Active Substance: AZITHROMYCIN ANHYDROUS
  17. VALACICLOVIR HYDROCHLORIDE [Concomitant]
     Active Substance: VALACYCLOVIR HYDROCHLORIDE
  18. GAMMAGARD [Concomitant]
     Active Substance: HUMAN IMMUNOGLOBULIN G

REACTIONS (4)
  - Ingrowing nail [Unknown]
  - Pain in extremity [Unknown]
  - Peripheral swelling [Unknown]
  - Contusion [Unknown]

NARRATIVE: CASE EVENT DATE: 2015
